FAERS Safety Report 7577156-5 (Version None)
Quarter: 2011Q2

REPORT INFORMATION
  Report Type: 
  Country: None (occurrence: None)
  Receive Date: 20110628
  Receipt Date: 20110525
  Transmission Date: 20111010
  Serious: No
  Sender: FDA-Public Use
  Company Number: US-BAYER-2011-047070

PATIENT

DRUGS (3)
  1. IBUPROFEN [Concomitant]
  2. ALEVE (CAPLET) [Suspect]
  3. VICODIN [Concomitant]

REACTIONS (1)
  - NO ADVERSE EVENT [None]
